FAERS Safety Report 16568969 (Version 1)
Quarter: 2019Q3

REPORT INFORMATION
  Report Type: Report from Study
  Country: PL (occurrence: PL)
  Receive Date: 20190713
  Receipt Date: 20190713
  Transmission Date: 20191004
  Serious: Yes (Hospitalization)
  Sender: FDA-Public Use
  Company Number: PL-UCBSA-029276

PATIENT
  Age: 57 Year
  Sex: Male
  Weight: 78 kg

DRUGS (8)
  1. PERINDOPRIL ERBUMINE. [Concomitant]
     Active Substance: PERINDOPRIL ERBUMINE
     Indication: HYPERTENSION
     Dosage: 8 MG, ONCE DAILY (QD)
     Dates: start: 201007
  2. AMLODIPINE [Concomitant]
     Active Substance: AMLODIPINE BESYLATE
     Indication: HYPERTENSION
     Dosage: 10 MG, ONCE DAILY (QD)
     Dates: start: 201007
  3. INSULIN HUMALOG MIX50 [Concomitant]
     Indication: DIABETES MELLITUS
     Dosage: 26 VI QD, 28VI QD, 8 VI QD
     Route: 058
     Dates: start: 20100730
  4. HYDROCHLOROTHIAZID [Concomitant]
     Active Substance: HYDROCHLOROTHIAZIDE
     Indication: HYPERTENSION
     Dosage: 20 MG, ONCE DAILY (QD)
     Route: 048
     Dates: start: 20101123
  5. MELOXICAM. [Concomitant]
     Active Substance: MELOXICAM
     Indication: SPONDYLITIS
     Dosage: 15 MG, ONCE DAILY (QD)
     Dates: start: 20091123
  6. VINPOCETINE [Concomitant]
     Active Substance: VINPOCETINE
     Indication: DIZZINESS
     Dosage: 5 MG, 3X/DAY (TID)
     Route: 048
     Dates: start: 20101123
  7. BISOPROLOL [Concomitant]
     Active Substance: BISOPROLOL
     Indication: HYPERTENSION
     Dosage: 2.5 MG, ONCE DAILY (QD)
     Dates: start: 201007
  8. CERTOLIZUMAB PEGOL VS PLACEBO [Suspect]
     Active Substance: CERTOLIZUMAB PEGOL
     Indication: SPONDYLITIS
     Dosage: 9 DOSES
     Route: 058
     Dates: start: 20101109

REACTIONS (1)
  - Hypoglycaemia [Recovered/Resolved]

NARRATIVE: CASE EVENT DATE: 20110312
